FAERS Safety Report 9116850 (Version 10)
Quarter: 2014Q1

REPORT INFORMATION
  Report Type: Report from Study
  Country: CA (occurrence: CA)
  Receive Date: 20130225
  Receipt Date: 20140128
  Transmission Date: 20141002
  Serious: Yes (Hospitalization, Other)
  Sender: FDA-Public Use
  Company Number: PHHY2013CA017738

PATIENT
  Age: 74 Year
  Sex: Female

DRUGS (7)
  1. SANDOSTATIN LAR [Suspect]
     Indication: ANGIODYSPLASIA
     Dosage: 20 MG, EVERY FOUR WEEKS
     Route: 030
     Dates: start: 20130218
  2. SANDOSTATIN LAR [Suspect]
     Dosage: 20 MG, EVERY FOUR WEEKS
     Route: 030
  3. SANDOSTATIN LAR [Suspect]
     Dosage: 20 MG, EVERY FOUR WEEKS
     Route: 030
  4. SANDOSTATIN [Suspect]
     Indication: ANGIODYSPLASIA
     Dosage: 150 UG, TID
     Route: 058
     Dates: start: 20130213, end: 20130217
  5. COUMADINE [Concomitant]
     Indication: ATRIAL FIBRILLATION
     Dosage: UNK UKN, UNK
     Dates: end: 20130906
  6. COUMADINE [Concomitant]
     Indication: MITRAL VALVE STENOSIS
  7. VENOFER [Concomitant]
     Dosage: UNK UKN, EVERY MONTH FOR 12 MONTHS
     Route: 042

REACTIONS (10)
  - Respiratory rate increased [Recovering/Resolving]
  - Dyspnoea exertional [Recovering/Resolving]
  - Haemoglobin decreased [Unknown]
  - Haemorrhoids [Unknown]
  - Haematochezia [Unknown]
  - Faeces hard [Unknown]
  - Pallor [Unknown]
  - Blood pressure decreased [Unknown]
  - International normalised ratio increased [Unknown]
  - Fatigue [Unknown]
